FAERS Safety Report 25469257 (Version 1)
Quarter: 2025Q2

REPORT INFORMATION
  Report Type: Spontaneous
  Country: IT (occurrence: IT)
  Receive Date: 20250623
  Receipt Date: 20250623
  Transmission Date: 20250716
  Serious: Yes (Hospitalization)
  Sender: IPSEN BIOPHARMACEUTICALS, INC.
  Company Number: IT-IPSEN Group, Research and Development-2025-14543

PATIENT
  Age: 26 Year
  Sex: Female

DRUGS (1)
  1. BOTULINUM TOXIN TYPE A [Suspect]
     Active Substance: BOTULINUM TOXIN TYPE A
     Indication: Hyperhidrosis
     Route: 050
     Dates: start: 20250617

REACTIONS (2)
  - Hypersensitivity [Unknown]
  - Off label use [Unknown]
